FAERS Safety Report 6336590-1 (Version None)
Quarter: 2009Q3

REPORT INFORMATION
  Report Type: 
  Country: None (occurrence: None)
  Receive Date: 20090831
  Receipt Date: 20090831
  Transmission Date: 20100115
  Serious: No
  Sender: FDA-Public Use
  Company Number: None

PATIENT
  Age: 29 Year
  Sex: Female
  Weight: 121.564 kg

DRUGS (4)
  1. ACYCLOVIR [Suspect]
     Indication: HERPES SIMPLEX
     Dosage: 830 MG Q8HOURS IV
     Route: 042
     Dates: start: 20090816, end: 20090817
  2. ACYCLOVIR [Suspect]
     Indication: NEURITIS
     Dosage: 830 MG Q8HOURS IV
     Route: 042
     Dates: start: 20090816, end: 20090817
  3. ATIVAN [Concomitant]
  4. TORADOL [Concomitant]

REACTIONS (2)
  - INJECTION SITE IRRITATION [None]
  - INJECTION SITE VESICLES [None]
